FAERS Safety Report 10363065 (Version 2)
Quarter: 2014Q3

REPORT INFORMATION
  Report Type: Spontaneous
  Country: BR (occurrence: BR)
  Receive Date: 20140805
  Receipt Date: 20140915
  Transmission Date: 20150326
  Serious: Yes (Hospitalization)
  Sender: FDA-Public Use
  Company Number: BR-ELI_LILLY_AND_COMPANY-BR201407011055

PATIENT
  Sex: Female
  Weight: 58 kg

DRUGS (5)
  1. HUMULIN N [Suspect]
     Active Substance: INSULIN HUMAN
     Dosage: 14 IU, QD
     Route: 058
     Dates: start: 2011
  2. HUMULIN N [Suspect]
     Active Substance: INSULIN HUMAN
     Dosage: 22 IU, EACH EVENING
     Route: 058
     Dates: start: 2011
  3. HUMULIN R [Suspect]
     Active Substance: INSULIN HUMAN
     Indication: DIABETES MELLITUS
     Dosage: UNK UNK, QD
     Route: 058
     Dates: start: 2011
  4. ENALAPRIL [Concomitant]
     Active Substance: ENALAPRIL
     Indication: RENAL DISORDER
     Dosage: 0.5 DF, QD
     Route: 065
  5. HUMULIN N [Suspect]
     Active Substance: INSULIN HUMAN
     Indication: DIABETES MELLITUS
     Dosage: 18 IU, EACH MORNING
     Route: 058
     Dates: start: 2011

REACTIONS (9)
  - Weight decreased [Recovered/Resolved]
  - Renal injury [Unknown]
  - Blood cholesterol increased [Unknown]
  - Blood albumin abnormal [Unknown]
  - Sepsis [Recovered/Resolved]
  - Neuropathy peripheral [Recovered/Resolved]
  - Coma [Recovered/Resolved]
  - Diabetes mellitus inadequate control [Unknown]
  - Blood glucose increased [Unknown]

NARRATIVE: CASE EVENT DATE: 2011
